FAERS Safety Report 6685743-1 (Version None)
Quarter: 2010Q2

REPORT INFORMATION
  Report Type: 
  Country: None (occurrence: None)
  Receive Date: 20100419
  Receipt Date: 20100412
  Transmission Date: 20101027
  Serious: Yes (Death)
  Sender: FDA-Public Use
  Company Number: NL-CELGENEUS-114-50794-10040774

PATIENT
  Sex: Male
  Weight: 64 kg

DRUGS (2)
  1. VIDAZA [Suspect]
     Route: 058
     Dates: start: 20100325, end: 20100329
  2. CARDIAC MEDICATION [Concomitant]
     Indication: DRUG USE FOR UNKNOWN INDICATION
     Route: 065

REACTIONS (1)
  - CARDIAC FAILURE [None]
